FAERS Safety Report 6802034-6 (Version None)
Quarter: 2010Q2

REPORT INFORMATION
  Report Type: 
  Country: None (occurrence: None)
  Receive Date: 20100629
  Receipt Date: 20071113
  Transmission Date: 20101027
  Serious: No
  Sender: FDA-Public Use
  Company Number: US-PFIZER INC-2007063861

PATIENT
  Sex: Female
  Weight: 104.33 kg

DRUGS (13)
  1. TIKOSYN [Suspect]
     Indication: ATRIAL FIBRILLATION
     Dates: start: 20060101
  2. ALDACTAZIDE [Suspect]
     Indication: DIURETIC THERAPY
     Dates: start: 20040101
  3. SYNTHROID [Concomitant]
  4. SPIRIVA [Concomitant]
     Route: 055
  5. COREG [Concomitant]
  6. METFORMIN HCL [Concomitant]
  7. WELCHOL [Concomitant]
  8. BENICAR [Concomitant]
  9. WARFARIN [Concomitant]
  10. ZETIA [Concomitant]
  11. OMACOR [Concomitant]
  12. COENZYME Q10 [Concomitant]
  13. LANTUS [Concomitant]

REACTIONS (1)
  - ATRIAL FIBRILLATION [None]
